FAERS Safety Report 4744221-7 (Version None)
Quarter: 2005Q3

REPORT INFORMATION
  Report Type: 
  Country: None (occurrence: None)
  Receive Date: 20050810
  Receipt Date: 20050810
  Transmission Date: 20060218
  Serious: Yes (Other)
  Sender: FDA-Public Use
  Company Number: None

PATIENT
  Sex: Female
  Weight: 59.4212 kg

DRUGS (11)
  1. ZOCOR [Suspect]
     Indication: HYPERLIPIDAEMIA
     Dosage: ONE PO Q PM
     Route: 048
     Dates: start: 20050701, end: 20050720
  2. DIOVAN [Concomitant]
  3. NEURONTIN [Concomitant]
  4. ZANAFLEX [Concomitant]
  5. TRAZADONE [Concomitant]
  6. ACTOS [Concomitant]
  7. LEXAPRO [Concomitant]
  8. TYLENOL W/ CODEINE [Concomitant]
  9. BUMETANIDE [Concomitant]
  10. ASPIRIN [Concomitant]
  11. LOTREL [Concomitant]

REACTIONS (3)
  - DIARRHOEA [None]
  - MYALGIA [None]
  - PALPITATIONS [None]
